FAERS Safety Report 5392890-3 (Version None)
Quarter: 2007Q3

REPORT INFORMATION
  Report Type: 
  Country: None (occurrence: None)
  Receive Date: 20070721
  Receipt Date: 20070710
  Transmission Date: 20080115
  Serious: Yes (Other)
  Sender: FDA-Public Use
  Company Number: US-PFIZER INC-2007058314

PATIENT
  Sex: Male
  Weight: 74.8 kg

DRUGS (3)
  1. CHANTIX [Suspect]
     Indication: EX-SMOKER
     Dates: start: 20070701, end: 20070710
  2. ENALAPRIL MALEATE [Concomitant]
  3. NIASPAN [Concomitant]

REACTIONS (9)
  - ACROPHOBIA [None]
  - BALANCE DISORDER [None]
  - DRY MOUTH [None]
  - FATIGUE [None]
  - FEAR [None]
  - IMPAIRED DRIVING ABILITY [None]
  - MALAISE [None]
  - PANIC REACTION [None]
  - SENSORY DISTURBANCE [None]
